FAERS Safety Report 19092605 (Version 3)
Quarter: 2021Q2

REPORT INFORMATION
  Report Type: Report from Study
  Country: US (occurrence: US)
  Receive Date: 20210405
  Receipt Date: 20210506
  Transmission Date: 20210717
  Serious: Yes (Hospitalization, Other)
  Sender: FDA-Public Use
  Company Number: US-TAKEDA-US202023923

PATIENT
  Age: 2 Year
  Sex: Female
  Weight: 11.1 kg

DRUGS (12)
  1. TEDUGLUTIDE [Suspect]
     Active Substance: TEDUGLUTIDE
     Indication: SHORT-BOWEL SYNDROME
     Dosage: 0.52 MILLIGRAM, QD
     Route: 058
     Dates: start: 202006
  2. TEDUGLUTIDE [Suspect]
     Active Substance: TEDUGLUTIDE
     Dosage: 0.052 MILLILITER
     Route: 058
     Dates: start: 20200702
  3. TEDUGLUTIDE [Suspect]
     Active Substance: TEDUGLUTIDE
     Indication: SHORT-BOWEL SYNDROME
     Dosage: 0.52 MILLIGRAM, QD
     Route: 058
     Dates: start: 202006
  4. TEDUGLUTIDE [Suspect]
     Active Substance: TEDUGLUTIDE
     Indication: MALABSORPTION
     Dosage: 0.52 MILLIGRAM, QD
     Route: 058
     Dates: start: 20200701
  5. TEDUGLUTIDE [Suspect]
     Active Substance: TEDUGLUTIDE
     Indication: MALABSORPTION
     Dosage: 0.52 MILLIGRAM, QD
     Route: 058
     Dates: start: 20200701
  6. TEDUGLUTIDE [Suspect]
     Active Substance: TEDUGLUTIDE
     Dosage: 0.052 MILLILITER
     Route: 058
     Dates: start: 20200702
  7. TEDUGLUTIDE [Suspect]
     Active Substance: TEDUGLUTIDE
     Indication: MALABSORPTION
     Dosage: 0.52 MILLIGRAM, QD
     Route: 058
     Dates: start: 20200701
  8. TEDUGLUTIDE [Suspect]
     Active Substance: TEDUGLUTIDE
     Dosage: 0.052 MILLILITER
     Route: 058
     Dates: start: 20200702
  9. TEDUGLUTIDE [Suspect]
     Active Substance: TEDUGLUTIDE
     Indication: SHORT-BOWEL SYNDROME
     Dosage: 0.52 MILLIGRAM, QD
     Route: 058
     Dates: start: 202006
  10. TEDUGLUTIDE [Suspect]
     Active Substance: TEDUGLUTIDE
     Indication: SHORT-BOWEL SYNDROME
     Dosage: 0.52 MILLIGRAM, QD
     Route: 058
     Dates: start: 202006
  11. TEDUGLUTIDE [Suspect]
     Active Substance: TEDUGLUTIDE
     Indication: MALABSORPTION
     Dosage: 0.52 MILLIGRAM, QD
     Route: 058
     Dates: start: 20200701
  12. TEDUGLUTIDE [Suspect]
     Active Substance: TEDUGLUTIDE
     Dosage: 0.052 MILLILITER
     Route: 058
     Dates: start: 20200702

REACTIONS (6)
  - Hospitalisation [Unknown]
  - Gastrointestinal stoma complication [Recovered/Resolved]
  - Complication associated with device [Unknown]
  - Product distribution issue [Unknown]
  - Illness [Unknown]
  - Inappropriate schedule of product administration [Recovered/Resolved]

NARRATIVE: CASE EVENT DATE: 20210407
